FAERS Safety Report 21133918 (Version 1)
Quarter: 2022Q3

REPORT INFORMATION
  Report Type: Spontaneous
  Country: US (occurrence: US)
  Receive Date: 20220726
  Receipt Date: 20220726
  Transmission Date: 20221027
  Serious: No
  Sender: FDA-Public Use
  Company Number: US-OYSTER POINT PHARMA, INC.-2022OYS00425

PATIENT
  Age: 59 Year
  Sex: Female
  Weight: 52.608 kg

DRUGS (3)
  1. TYRVAYA [Suspect]
     Active Substance: VARENICLINE TARTRATE
     Indication: Dry eye
     Dosage: 1 SPRAY IN EACH NOSTRIL, 2X/DAY
     Route: 045
     Dates: start: 20220430
  2. VITAMINS [Concomitant]
     Active Substance: VITAMINS
  3. ASTAT [Concomitant]

REACTIONS (9)
  - Eye allergy [Unknown]
  - Ocular hyperaemia [Unknown]
  - Abnormal sensation in eye [Unknown]
  - Foreign body sensation in eyes [Unknown]
  - Incorrect dose administered by device [Unknown]
  - Accidental exposure to product [Recovered/Resolved]
  - Wrong technique in product usage process [Recovered/Resolved]
  - Product dose omission issue [Unknown]
  - Product delivery mechanism issue [Unknown]

NARRATIVE: CASE EVENT DATE: 20220430
